FAERS Safety Report 25787811 (Version 1)
Quarter: 2025Q3

REPORT INFORMATION
  Report Type: Spontaneous
  Country: US (occurrence: None)
  Receive Date: 20250910
  Receipt Date: 20250910
  Transmission Date: 20251020
  Serious: Yes (unspecified)
  Sender: FDA-CTU
  Company Number: None

PATIENT
  Age: 69 Year
  Sex: Male
  Weight: 78.75 kg

DRUGS (8)
  1. SKYRIZI [Suspect]
     Active Substance: RISANKIZUMAB-RZAA
     Indication: Crohn^s disease
     Route: 030
     Dates: start: 20250301, end: 20250711
  2. PREDNISONE [Suspect]
     Active Substance: PREDNISONE
  3. BYSTOLIC [Concomitant]
     Active Substance: NEBIVOLOL HYDROCHLORIDE
  4. BUDESONIDE [Concomitant]
     Active Substance: BUDESONIDE
  5. AMBIEN [Concomitant]
     Active Substance: ZOLPIDEM TARTRATE
  6. BUSPAR [Concomitant]
     Active Substance: BUSPIRONE HYDROCHLORIDE
  7. DIAZEPAM [Concomitant]
     Active Substance: DIAZEPAM
  8. MELATONIN [Concomitant]
     Active Substance: MELATONIN

REACTIONS (4)
  - Infusion related reaction [None]
  - Drug reaction with eosinophilia and systemic symptoms [None]
  - Haemangioma rupture [None]
  - Haemangioma of skin [None]

NARRATIVE: CASE EVENT DATE: 20250711
